FAERS Safety Report 4274951-5 (Version None)
Quarter: 2004Q1

REPORT INFORMATION
  Report Type: 
  Country: None (occurrence: None)
  Receive Date: 20040120
  Receipt Date: 20040116
  Transmission Date: 20041129
  Serious: Yes (Hospitalization, Other)
  Sender: FDA-Public Use
  Company Number: 03-11-1413

PATIENT
  Age: 37 Year
  Sex: Female
  Weight: 71.2147 kg

DRUGS (3)
  1. CLOZAPINE [Suspect]
     Indication: SCHIZOPHRENIA
     Dosage: 200 MG ORAL
     Route: 048
     Dates: start: 20030619
  2. TRAZODONE HCL [Concomitant]
  3. ALBUTEROL SULFATE [Concomitant]

REACTIONS (12)
  - ASTHMA [None]
  - BRONCHITIS [None]
  - DEHYDRATION [None]
  - DIABETES MELLITUS NON-INSULIN-DEPENDENT [None]
  - DIARRHOEA [None]
  - DYSPNOEA EXERTIONAL [None]
  - NASOPHARYNGITIS [None]
  - NAUSEA [None]
  - OXYGEN SATURATION DECREASED [None]
  - RESPIRATORY RATE INCREASED [None]
  - VIRAL INFECTION [None]
  - VOMITING [None]
